FAERS Safety Report 9804355 (Version 1)
Quarter: 2014Q1

REPORT INFORMATION
  Report Type: Spontaneous
  Country: CA (occurrence: None)
  Receive Date: 20140106
  Receipt Date: 20140106
  Transmission Date: 20141002
  Serious: Yes (Other)
  Sender: FDA-Public Use
  Company Number: KAD201312-001795

PATIENT
  Sex: 0

DRUGS (3)
  1. RIBAVIRIN [Suspect]
     Indication: HEPATITIS C
  2. BOCEPREVIR [Suspect]
     Indication: HEPATITIS C
  3. PEGINTERFERON [Suspect]
     Indication: HEPATITIS C

REACTIONS (2)
  - Liver transplant rejection [None]
  - Anaemia [None]
